FAERS Safety Report 9571384 (Version 1)
Quarter: 2013Q4

REPORT INFORMATION
  Report Type: Spontaneous
  Country: FR (occurrence: FR)
  Receive Date: 20131001
  Receipt Date: 20131001
  Transmission Date: 20140711
  Serious: Yes (Hospitalization)
  Sender: FDA-Public Use
  Company Number: FR-JNJFOC-20130913623

PATIENT
  Age: 32 Year
  Sex: Female
  Weight: 59 kg

DRUGS (16)
  1. RISPERDALORO [Suspect]
     Indication: PSYCHOTIC DISORDER
     Route: 048
  2. RISPERDALORO [Suspect]
     Indication: PSYCHOTIC DISORDER
     Route: 048
  3. RISPERDALORO [Suspect]
     Indication: PSYCHOTIC DISORDER
     Route: 048
  4. KREDEX [Suspect]
     Indication: CONGESTIVE CARDIOMYOPATHY
     Dosage: 6.25X2/DAY
     Route: 048
     Dates: start: 20120808
  5. KREDEX [Suspect]
     Indication: CONGESTIVE CARDIOMYOPATHY
     Route: 048
  6. KREDEX [Suspect]
     Indication: CONGESTIVE CARDIOMYOPATHY
     Route: 048
  7. PARIET [Concomitant]
     Route: 065
  8. ALDACTONE [Concomitant]
     Route: 065
  9. ATACAND [Concomitant]
     Route: 065
  10. ATACAND [Concomitant]
     Route: 065
  11. LASILIX [Concomitant]
     Route: 065
  12. LASILIX [Concomitant]
     Route: 065
  13. FUMAFER [Concomitant]
     Route: 065
  14. LEXOMIL [Concomitant]
     Route: 065
  15. DIFFU-K [Concomitant]
     Route: 065
  16. PREVISCAN (FLUINDIONE) [Concomitant]
     Route: 065

REACTIONS (8)
  - Extrapyramidal disorder [Recovered/Resolved]
  - Renal failure acute [Recovering/Resolving]
  - Urinary retention [Unknown]
  - Hypotension [Not Recovered/Not Resolved]
  - Overdose [Unknown]
  - Hallucination [Unknown]
  - Asthenia [Unknown]
  - Apraxia [Unknown]
